FAERS Safety Report 23833508 (Version 2)
Quarter: 2024Q2

REPORT INFORMATION
  Report Type: Report from Study
  Country: US (occurrence: US)
  Receive Date: 20240508
  Receipt Date: 20240510
  Transmission Date: 20240715
  Serious: Yes (Death, Hospitalization)
  Sender: FDA-Public Use
  Company Number: US-ABBVIE-5279299

PATIENT
  Age: 68 Year
  Sex: Female

DRUGS (8)
  1. VENCLEXTA [Suspect]
     Active Substance: VENETOCLAX
     Indication: Acute myeloid leukaemia
     Dosage: FORM STRENGTH: 100 MILLIGRAM
     Route: 048
  2. ONDANSETRON [Concomitant]
     Active Substance: ONDANSETRON
     Indication: Product used for unknown indication
  3. AZACITIDINE [Concomitant]
     Active Substance: AZACITIDINE
     Indication: Product used for unknown indication
  4. ALBUTEROL [Concomitant]
     Active Substance: ALBUTEROL
     Indication: Product used for unknown indication
  5. ACYCLOVIR [Concomitant]
     Active Substance: ACYCLOVIR
     Indication: Product used for unknown indication
  6. CATHFLO ACTIVASE [Suspect]
     Active Substance: ALTEPLASE
     Indication: Complication associated with device
     Dosage: DOS: 09-JUN-2023
     Route: 065
  7. CATHFLO ACTIVASE [Suspect]
     Active Substance: ALTEPLASE
     Indication: Complication associated with device
     Dosage: DOS: 09-JUN-2023
     Route: 065
  8. CATHFLO ACTIVASE [Suspect]
     Active Substance: ALTEPLASE
     Indication: Complication associated with device
     Dosage: DOT: 09-JUN-2023
     Route: 065

REACTIONS (3)
  - Death [Fatal]
  - Off label use [Unknown]
  - Hospitalisation [Unknown]

NARRATIVE: CASE EVENT DATE: 20230628
